FAERS Safety Report 17637831 (Version 1)
Quarter: 2020Q2

REPORT INFORMATION
  Report Type: Spontaneous
  Country: US (occurrence: US)
  Receive Date: 20200404
  Receipt Date: 20200404
  Transmission Date: 20200713
  Serious: Yes (Death)
  Sender: FDA-Public Use
  Company Number: None

PATIENT
  Age: 64 Year
  Sex: Male
  Weight: 101.1 kg

DRUGS (3)
  1. CABAZITAXEL [Concomitant]
     Active Substance: CABAZITAXEL
     Dates: end: 20200326
  2. PREDNISONE. [Suspect]
     Active Substance: PREDNISONE
     Dates: end: 20200326
  3. ABIRATERONE ACETATE. [Suspect]
     Active Substance: ABIRATERONE ACETATE
     Dates: end: 20200326

REACTIONS (2)
  - Fall [None]
  - Cardiac arrest [None]

NARRATIVE: CASE EVENT DATE: 20200401
